FAERS Safety Report 16475858 (Version 6)
Quarter: 2020Q4

REPORT INFORMATION
  Report Type: Report from Study
  Country: US (occurrence: US)
  Receive Date: 20190625
  Receipt Date: 20201014
  Transmission Date: 20210113
  Serious: Yes (Hospitalization)
  Sender: FDA-Public Use
  Company Number: PHEH2019US026449

PATIENT
  Age: 50 Year
  Sex: Female

DRUGS (3)
  1. GILENYA [Suspect]
     Active Substance: FINGOLIMOD HYDROCHLORIDE
     Indication: MULTIPLE SCLEROSIS
     Dosage: 0.5 MG, QD
     Route: 048
  2. KEPPRA [Concomitant]
     Active Substance: LEVETIRACETAM
     Indication: SEIZURE
     Dosage: UNK
     Route: 065
  3. GILENYA [Suspect]
     Active Substance: FINGOLIMOD HYDROCHLORIDE
     Indication: RELAPSING-REMITTING MULTIPLE SCLEROSIS
     Dosage: 0.5 MG, QD
     Route: 048
     Dates: start: 20190322

REACTIONS (8)
  - Memory impairment [Unknown]
  - Seizure [Unknown]
  - Confusional state [Unknown]
  - Headache [Unknown]
  - Extra dose administered [Unknown]
  - Pain in extremity [Unknown]
  - Product dose omission issue [Unknown]
  - Epilepsy [Unknown]

NARRATIVE: CASE EVENT DATE: 20201005
